FAERS Safety Report 14991087 (Version 1)
Quarter: 2018Q2

REPORT INFORMATION
  Report Type: Spontaneous
  Country: US (occurrence: US)
  Receive Date: 20180608
  Receipt Date: 20180608
  Transmission Date: 20180711
  Serious: No
  Sender: FDA-Public Use
  Company Number: US-BAYER-2018-108950

PATIENT
  Age: 83 Year
  Sex: Female
  Weight: 56.96 kg

DRUGS (1)
  1. MIRALAX [Suspect]
     Active Substance: POLYETHYLENE GLYCOL 3350
     Indication: GASTROINTESTINAL DISORDER
     Dosage: 1/2 TO FULL DOSE DOSE
     Route: 048
     Dates: start: 2017

REACTIONS (2)
  - Incorrect drug administration duration [Unknown]
  - Product use issue [Unknown]

NARRATIVE: CASE EVENT DATE: 2017
